FAERS Safety Report 19135686 (Version 5)
Quarter: 2021Q3

REPORT INFORMATION
  Report Type: Spontaneous
  Country: US (occurrence: US)
  Receive Date: 20210414
  Receipt Date: 20210806
  Transmission Date: 20211014
  Serious: Yes (Hospitalization, Other)
  Sender: FDA-Public Use
  Company Number: US-MALLINCKRODT PHARMACEUTICALS-T202004115

PATIENT
  Sex: Female
  Weight: 89 kg

DRUGS (4)
  1. H.P. ACTHAR [Suspect]
     Active Substance: CORTICOTROPIN
     Indication: PSORIATIC ARTHROPATHY
     Dosage: 80 UNITS, TWO TIMES A WEEK
     Route: 058
  2. H.P. ACTHAR [Suspect]
     Active Substance: CORTICOTROPIN
     Indication: RHEUMATOID ARTHRITIS
  3. H.P. ACTHAR [Suspect]
     Active Substance: CORTICOTROPIN
     Indication: MULTIPLE SCLEROSIS
  4. H.P. ACTHAR [Suspect]
     Active Substance: CORTICOTROPIN
     Indication: PSORIASIS
     Dosage: 80 UNITS, TWO TIMES A WEEK
     Route: 058
     Dates: start: 201808

REACTIONS (10)
  - Influenza [Unknown]
  - Delirium [Unknown]
  - Syncope [Unknown]
  - Pulmonary oedema [Not Recovered/Not Resolved]
  - Shoulder operation [Unknown]
  - Aneurysm [Unknown]
  - Vomiting [Unknown]
  - Tremor [Unknown]
  - Blood pressure increased [Unknown]
  - Musculoskeletal disorder [Unknown]
